FAERS Safety Report 6114226-2 (Version None)
Quarter: 2009Q1

REPORT INFORMATION
  Report Type: 
  Country: None (occurrence: None)
  Receive Date: 20090312
  Receipt Date: 20081006
  Transmission Date: 20090719
  Serious: No
  Sender: FDA-Public Use
  Company Number: US-ABBOTT-08P-163-0479937-00

PATIENT
  Sex: Female

DRUGS (2)
  1. DEPAKOTE [Suspect]
     Indication: CONVULSION
     Dosage: 500 IN MORNING AND 750 AT NIGHT
     Route: 048
     Dates: start: 19850101, end: 20060301
  2. THYROID TAB [Concomitant]
     Indication: HYPOTHYROIDISM
     Route: 048

REACTIONS (14)
  - CRYING [None]
  - DEPRESSION [None]
  - DYSGEUSIA [None]
  - INSOMNIA [None]
  - MEMORY IMPAIRMENT [None]
  - MICTURITION URGENCY [None]
  - PALPITATIONS [None]
  - PARAESTHESIA [None]
  - POST-TRAUMATIC STRESS DISORDER [None]
  - THROAT TIGHTNESS [None]
  - TINNITUS [None]
  - TREMOR [None]
  - VOMITING [None]
  - WEIGHT DECREASED [None]
